FAERS Safety Report 4609927-9 (Version None)
Quarter: 2005Q1

REPORT INFORMATION
  Report Type: 
  Country: None (occurrence: None)
  Receive Date: 20050314
  Receipt Date: 20050314
  Transmission Date: 20050727
  Serious: Yes (Hospitalization)
  Sender: FDA-Public Use
  Company Number: None

PATIENT
  Age: 62 Year
  Sex: Male

DRUGS (5)
  1. PHENYTOIN [Suspect]
     Indication: CONVULSION
     Dosage: 300 MG QD
     Dates: start: 19970401
  2. FELODIPINE [Concomitant]
  3. FUROSEMIDE [Concomitant]
  4. ZOCOR [Concomitant]
  5. THIAMINE [Concomitant]

REACTIONS (1)
  - DYSSTASIA [None]
